FAERS Safety Report 18694235 (Version 1)
Quarter: 2021Q1

REPORT INFORMATION
  Report Type: Spontaneous
  Country: US (occurrence: US)
  Receive Date: 20210101
  Receipt Date: 20210101
  Transmission Date: 20210419
  Serious: Yes (Other)
  Sender: FDA-Public Use
  Company Number: None

PATIENT
  Age: 59 Year
  Sex: Male

DRUGS (1)
  1. BAMLANIVIMAB. [Suspect]
     Active Substance: BAMLANIVIMAB
     Dates: start: 20201229

REACTIONS (5)
  - Cough [None]
  - Intentional product use issue [None]
  - Wheezing [None]
  - Lacrimation increased [None]
  - Oxygen saturation decreased [None]

NARRATIVE: CASE EVENT DATE: 20201230
